FAERS Safety Report 9523596 (Version 3)
Quarter: 2013Q3

REPORT INFORMATION
  Report Type: Report from Study
  Country: KE (occurrence: KE)
  Receive Date: 20130913
  Receipt Date: 20130927
  Transmission Date: 20140515
  Serious: Yes (Death, Life-Threatening, Hospitalization)
  Sender: FDA-Public Use
  Company Number: KE-009507513-1309KEN002625

PATIENT
  Age: 24 Year
  Sex: Female

DRUGS (16)
  1. RALTEGRAVIR POTASSIUM [Suspect]
     Indication: HIV INFECTION
     Dosage: UNK
     Route: 048
     Dates: start: 20130822, end: 20130830
  2. TENOFOVIR [Suspect]
     Indication: HIV INFECTION
     Dosage: UNK
     Route: 048
     Dates: start: 20130822, end: 20130830
  3. RIFAMPIN [Suspect]
     Dosage: UNK
     Dates: start: 20130826, end: 20130830
  4. ACYCLOVIR [Suspect]
     Dosage: UNK
     Dates: start: 20130822, end: 20130828
  5. AZITHROMYCIN [Suspect]
     Dosage: UNK
     Dates: start: 20130822, end: 20130824
  6. FLUCONAZOLE [Suspect]
     Dosage: UNK
     Dates: start: 20130819, end: 20130829
  7. EMTRICITABINE [Suspect]
     Indication: HIV INFECTION
     Dosage: UNK
     Route: 048
     Dates: start: 20130822, end: 20130830
  8. PYRIDOXINE [Concomitant]
     Dosage: UNK
     Dates: start: 20130826, end: 20130830
  9. EFAVIRENZ [Concomitant]
     Dosage: UNK
     Dates: start: 20130822, end: 20130830
  10. AMOXYL [Concomitant]
     Dosage: UNK
     Dates: start: 20130819, end: 20130824
  11. ISONIAZID [Concomitant]
     Dosage: UNK
     Dates: start: 20130826, end: 20130830
  12. PYRAZINAMIDE [Concomitant]
     Dosage: UNK
     Dates: start: 20130826, end: 20130830
  13. ETHAMBUTOL HYDROCHLORIDE [Concomitant]
     Dosage: UNK
     Dates: start: 20130826, end: 20130830
  14. VITAMIN A [Concomitant]
     Dosage: UNK
     Dates: start: 20130826, end: 20130826
  15. COTRIMAZOLE [Concomitant]
     Dosage: UNK
     Dates: start: 20130812
  16. ACETAMINOPHEN [Concomitant]
     Dosage: UNK
     Dates: start: 20130826, end: 20130830

REACTIONS (4)
  - Lymphopenia [Fatal]
  - Renal failure acute [Fatal]
  - Anaemia [Fatal]
  - Pulmonary tuberculosis [Fatal]
